FAERS Safety Report 11123452 (Version 6)
Quarter: 2015Q4

REPORT INFORMATION
  Report Type: Report from Study
  Country: US (occurrence: US)
  Receive Date: 20150519
  Receipt Date: 20151130
  Transmission Date: 20160304
  Serious: Yes (Hospitalization)
  Sender: FDA-Public Use
  Company Number: US-ACTELION-A-NJ2015-115898

PATIENT
  Age: 70 Year
  Sex: Female

DRUGS (5)
  1. VELETRI [Suspect]
     Active Substance: EPOPROSTENOL
     Dosage: UNK
     Route: 042
  2. MACITENTAN [Suspect]
     Active Substance: MACITENTAN
     Indication: PULMONARY HYPERTENSION
     Dosage: 10 MG, QD
     Route: 048
     Dates: start: 20140512
  3. VELETRI [Suspect]
     Active Substance: EPOPROSTENOL
     Indication: PULMONARY HYPERTENSION
     Dosage: 20 NG/KG, PER MIN
     Route: 042
     Dates: start: 20140812
  4. HYDROCODONE [Concomitant]
     Active Substance: HYDROCODONE
  5. ADCIRCA [Concomitant]
     Active Substance: TADALAFIL

REACTIONS (16)
  - Condition aggravated [Unknown]
  - Limb injury [Unknown]
  - Arthralgia [Unknown]
  - Arthritis [Unknown]
  - Diarrhoea [Unknown]
  - Pain in extremity [Unknown]
  - Feeling hot [Unknown]
  - Joint swelling [Unknown]
  - Skin exfoliation [Unknown]
  - Peripheral swelling [Unknown]
  - Joint effusion [Unknown]
  - White blood cell count decreased [Unknown]
  - Joint fluid drainage [Unknown]
  - Polymyositis [Unknown]
  - Arthritis infective [Unknown]
  - Blood potassium decreased [Unknown]
